FAERS Safety Report 6060605-1 (Version None)
Quarter: 2009Q1

REPORT INFORMATION
  Report Type: 
  Country: None (occurrence: None)
  Receive Date: 20090130
  Receipt Date: 20090130
  Transmission Date: 20090719
  Serious: Yes (Disabling)
  Sender: FDA-Public Use
  Company Number: None

PATIENT
  Age: 53 Year
  Sex: Male
  Weight: 122.4712 kg

DRUGS (1)
  1. CRESTOR [Suspect]
     Indication: HYPERTRIGLYCERIDAEMIA
     Dosage: 20 MG. DAILY P.O.
     Route: 048
     Dates: start: 20070920, end: 20080220

REACTIONS (27)
  - AGGRESSION [None]
  - AGITATION [None]
  - AMNESIA [None]
  - AMNESTIC DISORDER [None]
  - BLOOD CHOLESTEROL DECREASED [None]
  - BLOOD TRIGLYCERIDES DECREASED [None]
  - COGNITIVE DISORDER [None]
  - CREUTZFELDT-JAKOB DISEASE [None]
  - DEMENTIA ALZHEIMER'S TYPE [None]
  - DISTURBANCE IN ATTENTION [None]
  - DRUG TOXICITY [None]
  - FATIGUE [None]
  - GRAND MAL CONVULSION [None]
  - HIPPOCAMPAL SCLEROSIS [None]
  - HYPERMETABOLISM [None]
  - HYPOMETABOLISM [None]
  - IMPAIRED WORK ABILITY [None]
  - INFECTION [None]
  - INSOMNIA [None]
  - LOW DENSITY LIPOPROTEIN DECREASED [None]
  - MENTAL DISORDER DUE TO A GENERAL MEDICAL CONDITION [None]
  - METABOLIC DISORDER [None]
  - MOTOR DYSFUNCTION [None]
  - NERVOUS SYSTEM DISORDER [None]
  - PERFORMANCE STATUS DECREASED [None]
  - SOCIAL PROBLEM [None]
  - STRESS [None]
